FAERS Safety Report 12894996 (Version 3)
Quarter: 2017Q1

REPORT INFORMATION
  Report Type: Report from Study
  Country: US (occurrence: US)
  Receive Date: 20161029
  Receipt Date: 20170210
  Transmission Date: 20170428
  Serious: Yes (Other)
  Sender: FDA-Public Use
  Company Number: US-ASTRAZENECA-2016SF11961

PATIENT
  Age: 724 Month
  Sex: Female
  Weight: 68 kg

DRUGS (2)
  1. CRESTOR [Suspect]
     Active Substance: ROSUVASTATIN CALCIUM
     Indication: BLOOD CHOLESTEROL INCREASED
     Dosage: 40.0MG UNKNOWN
     Route: 048
     Dates: start: 201609, end: 201609
  2. CRESTOR [Suspect]
     Active Substance: ROSUVASTATIN CALCIUM
     Indication: BLOOD CHOLESTEROL INCREASED
     Dosage: 40 MG DAILY GENERIC UNKNOWN
     Route: 065

REACTIONS (4)
  - Pain [Unknown]
  - Back pain [Recovered/Resolved]
  - Product substitution issue [Unknown]
  - Breast cancer female [Unknown]

NARRATIVE: CASE EVENT DATE: 201510
